FAERS Safety Report 19142948 (Version 2)
Quarter: 2021Q2

REPORT INFORMATION
  Report Type: Spontaneous
  Country: US (occurrence: US)
  Receive Date: 20210416
  Receipt Date: 20210420
  Transmission Date: 20210717
  Serious: No
  Sender: FDA-Public Use
  Company Number: US-SCIEGEN-2021SCISPO00361

PATIENT
  Sex: Female

DRUGS (1)
  1. FEXOFENADINE HYDROCHLORIDE TABLETS [Suspect]
     Active Substance: FEXOFENADINE HYDROCHLORIDE
     Indication: HYPERSENSITIVITY
     Route: 065
     Dates: start: 20210406

REACTIONS (3)
  - Expired product administered [Unknown]
  - Extra dose administered [Unknown]
  - Fear of death [Unknown]

NARRATIVE: CASE EVENT DATE: 20210406
